FAERS Safety Report 16748521 (Version 3)
Quarter: 2020Q4

REPORT INFORMATION
  Report Type: Spontaneous
  Country: CH (occurrence: CH)
  Receive Date: 20190828
  Receipt Date: 20201126
  Transmission Date: 20210113
  Serious: Yes (Death, Hospitalization, Other)
  Sender: FDA-Public Use
  Company Number: CH-PFIZER INC-2019368398

PATIENT
  Age: 73 Year
  Sex: Male

DRUGS (13)
  1. FUROSEMIDE. [Suspect]
     Active Substance: FUROSEMIDE
     Dosage: 40 MG, PRN
     Route: 048
     Dates: end: 20190801
  2. JADENU [Suspect]
     Active Substance: DEFERASIROX
     Indication: FOLLICULITIS
     Dosage: 360 MG MORNING AND NOON, 180 MG IN THE EVENING
     Route: 048
     Dates: start: 201907, end: 20190801
  3. JADENU [Suspect]
     Active Substance: DEFERASIROX
     Dosage: 360 MG MORNING AND NOON, 180 MG IN THE EVENING
     Route: 048
     Dates: start: 201907, end: 20190801
  4. SINTROM [Concomitant]
     Active Substance: ACENOCOUMAROL
     Dosage: UNK
  5. JADENU [Suspect]
     Active Substance: DEFERASIROX
     Dosage: 180 MG, QD
     Route: 048
     Dates: start: 2019, end: 20190801
  6. BELOC ZOK [Concomitant]
     Active Substance: METOPROLOL SUCCINATE
     Dosage: UNK
  7. LEVETIRACETAM. [Concomitant]
     Active Substance: LEVETIRACETAM
     Dosage: UNK
  8. TRIATEC (RAMIPRIL) [Suspect]
     Active Substance: RAMIPRIL
     Dosage: 1.25 MG, BID
     Route: 048
     Dates: start: 2019
  9. CRESTOR [Concomitant]
     Active Substance: ROSUVASTATIN CALCIUM
     Dosage: UNK
  10. DUOTRAV [Concomitant]
     Active Substance: TIMOLOL MALEATE\TRAVOPROST
     Dosage: UNK
  11. TORASEMIDE [Concomitant]
     Active Substance: TORSEMIDE
     Dosage: UNK
  12. ALDACTONE [Concomitant]
     Active Substance: SPIRONOLACTONE
     Dosage: 12.5 MG, 1X/DAY
     Route: 048
  13. RESONIUM A [Concomitant]
     Active Substance: SODIUM POLYSTYRENE SULFONATE
     Dosage: UNK

REACTIONS (5)
  - Acute febrile neutrophilic dermatosis [Recovered/Resolved]
  - Multiple organ dysfunction syndrome [Fatal]
  - Shock symptom [Fatal]
  - Acute respiratory distress syndrome [Fatal]
  - COVID-19 [Fatal]

NARRATIVE: CASE EVENT DATE: 20190801
